FAERS Safety Report 21154237 (Version 1)
Quarter: 2022Q3

REPORT INFORMATION
  Report Type: Spontaneous
  Country: FR (occurrence: None)
  Receive Date: 20220801
  Receipt Date: 20220801
  Transmission Date: 20221027
  Serious: Yes (Other)
  Sender: FDA-Public Use
  Company Number: FR-ROCHE-3147011

PATIENT

DRUGS (3)
  1. EMICIZUMAB [Suspect]
     Active Substance: EMICIZUMAB
     Indication: Haemophilia
     Route: 065
     Dates: start: 202204
  2. EMICIZUMAB [Suspect]
     Active Substance: EMICIZUMAB
     Indication: HIV infection
  3. EMICIZUMAB [Suspect]
     Active Substance: EMICIZUMAB
     Indication: Hepatitis B

REACTIONS (2)
  - Dermatitis bullous [Unknown]
  - Porphyria non-acute [Unknown]
